FAERS Safety Report 8882588 (Version 1)
Quarter: 2012Q4

REPORT INFORMATION
  Report Type: 
  Country: CA (occurrence: CA)
  Receive Date: 20121104
  Receipt Date: 20121104
  Transmission Date: 20130627
  Serious: Yes (Other)
  Sender: FDA-Public Use
  Company Number: PHHY2008CA044566

PATIENT
  Age: 52 Year

DRUGS (1)
  1. SANDOSTATIN LAR [Suspect]
     Dosage: UNK
     Dates: start: 20080116

REACTIONS (3)
  - Blood pressure fluctuation [Unknown]
  - Injection site pain [Recovered/Resolved]
  - Headache [Unknown]
